FAERS Safety Report 5403668-6 (Version None)
Quarter: 2007Q3

REPORT INFORMATION
  Report Type: 
  Country: None (occurrence: None)
  Receive Date: 20070713
  Receipt Date: 20070417
  Transmission Date: 20080115
  Serious: Yes (Hospitalization, Other)
  Sender: FDA-Public Use
  Company Number: US-JNJFOC-20070402536

PATIENT
  Age: 23 Year
  Sex: Female

DRUGS (3)
  1. ORTHO EVRA [Suspect]
     Indication: DRUG USE FOR UNKNOWN INDICATION
     Dosage: TRANSDERMAL
     Route: 062
     Dates: start: 20030327
  2. NEXIUM [Concomitant]
  3. PHENERGAN [Concomitant]

REACTIONS (2)
  - HEADACHE [None]
  - MESENTERIC VEIN THROMBOSIS [None]
